FAERS Safety Report 5587060-X (Version None)
Quarter: 2008Q1

REPORT INFORMATION
  Report Type: 
  Country: None (occurrence: None)
  Receive Date: 20080110
  Receipt Date: 20080103
  Transmission Date: 20080703
  Serious: Yes (Other)
  Sender: FDA-Public Use
  Company Number: B0361190A

PATIENT
  Sex: Female

DRUGS (5)
  1. PAROXETINE HYDROCHLORIDE [Suspect]
     Route: 065
     Dates: start: 19970424, end: 20020101
  2. PAROXETINE HYDROCHLORIDE [Suspect]
     Route: 065
     Dates: start: 20020628, end: 20020101
  3. FLUOXETINE HCL [Concomitant]
     Route: 065
     Dates: start: 20020701, end: 20020101
  4. PROZAC [Concomitant]
     Route: 065
     Dates: start: 20020711
  5. DOSULEPIN [Concomitant]
     Route: 065
     Dates: start: 20021016

REACTIONS (18)
  - AGGRESSION [None]
  - AMNESIA [None]
  - BODY TEMPERATURE FLUCTUATION [None]
  - CONFUSIONAL STATE [None]
  - DIARRHOEA [None]
  - DISORIENTATION [None]
  - HEADACHE [None]
  - HYPERHIDROSIS [None]
  - INSOMNIA [None]
  - LOSS OF CONSCIOUSNESS [None]
  - MOOD SWINGS [None]
  - MUSCLE TWITCHING [None]
  - NAUSEA [None]
  - NIGHTMARE [None]
  - PARAESTHESIA [None]
  - SUICIDAL IDEATION [None]
  - VOMITING [None]
  - WITHDRAWAL SYNDROME [None]
